FAERS Safety Report 9387378 (Version 1)
Quarter: 2013Q3

REPORT INFORMATION
  Report Type: Spontaneous
  Country: US (occurrence: US)
  Receive Date: 20130708
  Receipt Date: 20130708
  Transmission Date: 20140515
  Serious: No
  Sender: FDA-Public Use
  Company Number: US-GLAXOSMITHKLINE-A1020965A

PATIENT
  Sex: Female

DRUGS (2)
  1. POTIGA [Suspect]
     Indication: CONVULSION
     Route: 048
  2. NO CONCURRENT MEDICATION [Concomitant]

REACTIONS (2)
  - Diplopia [Recovered/Resolved]
  - Visual impairment [Unknown]
